FAERS Safety Report 15454098 (Version 2)
Quarter: 2018Q4

REPORT INFORMATION
  Report Type: Report from Study
  Country: None (occurrence: BR)
  Receive Date: 20181002
  Receipt Date: 20181011
  Transmission Date: 20190204
  Serious: Yes (Hospitalization)
  Sender: FDA-Public Use
  Company Number: BR-ABBVIE-18K-020-2504329-00

PATIENT
  Age: 29 Year
  Sex: Male
  Weight: 53 kg

DRUGS (6)
  1. HUMIRA [Suspect]
     Active Substance: ADALIMUMAB
     Route: 058
  2. HUMIRA [Suspect]
     Active Substance: ADALIMUMAB
     Indication: COLITIS ULCERATIVE
     Dosage: LOADING DOSE
     Route: 058
     Dates: start: 20180307, end: 20180307
  3. HYDROCORTISONE. [Concomitant]
     Active Substance: HYDROCORTISONE
     Indication: DIARRHOEA
     Route: 042
  4. HUMIRA [Suspect]
     Active Substance: ADALIMUMAB
     Dosage: LOADING DOSE
     Route: 058
     Dates: start: 2018, end: 2018
  5. AZATHIOPRINE. [Concomitant]
     Active Substance: AZATHIOPRINE
     Indication: COLITIS ULCERATIVE
  6. HYDROCORTISONE. [Concomitant]
     Active Substance: HYDROCORTISONE
     Indication: HAEMATOCHEZIA

REACTIONS (16)
  - Product administered at inappropriate site [Unknown]
  - Diarrhoea [Recovering/Resolving]
  - Flatulence [Not Recovered/Not Resolved]
  - Haemoglobin increased [Unknown]
  - Colitis [Unknown]
  - Intestinal haemorrhage [Recovered/Resolved]
  - Haematochezia [Recovering/Resolving]
  - Weight decreased [Recovered/Resolved]
  - Blood iron decreased [Unknown]
  - Anaemia [Recovered/Resolved]
  - Gastrointestinal inflammation [Unknown]
  - Weight gain poor [Not Recovered/Not Resolved]
  - Haemoglobin decreased [Recovered/Resolved]
  - Abdominal pain [Unknown]
  - Rectal tenesmus [Recovering/Resolving]
  - Drug ineffective [Recovering/Resolving]

NARRATIVE: CASE EVENT DATE: 2018
